FAERS Safety Report 24594304 (Version 1)
Quarter: 2024Q4

REPORT INFORMATION
  Report Type: Spontaneous
  Country: US (occurrence: US)
  Receive Date: 20241108
  Receipt Date: 20241108
  Transmission Date: 20250114
  Serious: No
  Sender: MYLAN
  Company Number: US-MYLANLABS-2024M1098929

PATIENT
  Sex: Female

DRUGS (1)
  1. FENTANYL TRANSDERMAL SYSTEM [Suspect]
     Active Substance: FENTANYL
     Indication: Neuralgia
     Dosage: 25 MICROGRAM, QH (PER HOUR, ONE PATCH EVERY 3 DAYS)
     Route: 062
     Dates: start: 2024

REACTIONS (3)
  - Therapy interrupted [Unknown]
  - Product adhesion issue [Unknown]
  - Product design issue [Unknown]

NARRATIVE: CASE EVENT DATE: 20240101
